FAERS Safety Report 12609979 (Version 1)
Quarter: 2016Q3

REPORT INFORMATION
  Report Type: Spontaneous
  Country: HR (occurrence: HR)
  Receive Date: 20160801
  Receipt Date: 20160801
  Transmission Date: 20161109
  Serious: Yes (Other)
  Sender: FDA-Public Use
  Company Number: HR-ROCHE-1805519

PATIENT
  Age: 74 Year
  Sex: Female

DRUGS (9)
  1. MEDROL [Concomitant]
     Active Substance: METHYLPREDNISOLONE
     Indication: RHEUMATOID ARTHRITIS
     Route: 048
     Dates: start: 2000, end: 20160708
  2. CONTROLOC [Concomitant]
     Active Substance: PANTOPRAZOLE SODIUM
     Dosage: 1 TBL P.P.
     Route: 048
  3. IBUPROFEN. [Concomitant]
     Active Substance: IBUPROFEN
     Indication: RHEUMATOID ARTHRITIS
     Route: 048
  4. BONNEDRA [Concomitant]
     Indication: OSTEOPOROSIS
     Dosage: 1 TBL/MJ
     Route: 048
  5. ZALDIAR [Concomitant]
     Active Substance: ACETAMINOPHEN\TRAMADOL HYDROCHLORIDE
     Indication: RHEUMATOID ARTHRITIS
     Dosage: 1-2 TBL /MJ
     Route: 048
  6. FURSEMID [Concomitant]
     Active Substance: FUROSEMIDE
     Indication: HYPERTENSION
     Dosage: 1 TBL STD
     Route: 048
  7. SORTIS [Concomitant]
     Active Substance: ATORVASTATIN
     Dosage: 1 TBL/DAN
     Route: 048
  8. KALINOR [Concomitant]
     Active Substance: POTASSIUM CITRATE
     Dosage: 1 TBL STD
     Route: 048
  9. ROACTEMRA [Suspect]
     Active Substance: TOCILIZUMAB
     Indication: RHEUMATOID ARTHRITIS
     Dosage: 8 MG/1 KG TT, 720 MG THEN 680 MG I.V. 1X/MG
     Route: 041
     Dates: start: 20131216

REACTIONS (4)
  - Malaise [Recovered/Resolved]
  - Sciatica [Recovered/Resolved]
  - Psoas abscess [Recovered/Resolved]
  - Escherichia urinary tract infection [Recovered/Resolved]

NARRATIVE: CASE EVENT DATE: 201606
